FAERS Safety Report 13380735 (Version 1)
Quarter: 2017Q1

REPORT INFORMATION
  Report Type: Spontaneous
  Country: US (occurrence: US)
  Receive Date: 20170329
  Receipt Date: 20170329
  Transmission Date: 20170429
  Serious: No
  Sender: FDA-Public Use
  Company Number: US-B.I. PHARMACEUTICALS,INC./RIDGEFIELD-2017-BI-017373

PATIENT
  Sex: Male

DRUGS (1)
  1. PRADAXA [Suspect]
     Active Substance: DABIGATRAN ETEXILATE MESYLATE
     Indication: PRODUCT USED FOR UNKNOWN INDICATION
     Dosage: UNKNOWN;  FORM STRENGTH: 150 MG; FORMULATION: CAPSULE ADMINISTRATION CORRECT? NR(NOT REPORTED) ACTIO
     Route: 048
     Dates: start: 201606

REACTIONS (4)
  - Carpal tunnel syndrome [Unknown]
  - Joint injury [Unknown]
  - Rotator cuff syndrome [Unknown]
  - Musculoskeletal discomfort [Unknown]
